FAERS Safety Report 12924011 (Version 1)
Quarter: 2016Q4

REPORT INFORMATION
  Report Type: Report from Study
  Country: GB (occurrence: GB)
  Receive Date: 20161109
  Receipt Date: 20161109
  Transmission Date: 20170207
  Serious: Yes (Death, Other)
  Sender: FDA-Public Use
  Company Number: GB-AMAG PHARMACEUTICALS, INC.-AMAG201602468

PATIENT

DRUGS (2)
  1. RIENSO [Suspect]
     Active Substance: FERUMOXYTOL
     Indication: IMAGING PROCEDURE
     Dosage: 7.2 UNK, UNK
     Route: 042
     Dates: start: 20140515, end: 20140515
  2. BUSCOPAN [Concomitant]
     Active Substance: BUTYLSCOPOLAMINE BROMIDE
     Indication: PRODUCT USED FOR UNKNOWN INDICATION
     Dosage: 20 MG, SINGLE
     Route: 042
     Dates: start: 20140515, end: 20140515

REACTIONS (1)
  - Myocardial infarction [Fatal]
